FAERS Safety Report 9929106 (Version 1)
Quarter: 2014Q1

REPORT INFORMATION
  Report Type: Spontaneous
  Country: CA (occurrence: None)
  Receive Date: 20140225
  Receipt Date: 20140225
  Transmission Date: 20141002
  Serious: Yes (Death, Hospitalization)
  Sender: FDA-Public Use
  Company Number: FK201400613

PATIENT
  Age: 32 Month
  Sex: Male

DRUGS (5)
  1. CARBOPLATIN [Suspect]
     Indication: MEDULLOBLASTOMA
     Dosage: 17 MG/KG 3 COURSES
  2. THIOTEPA [Suspect]
     Indication: MEDULLOBLASTOMA
     Dosage: 10 MG/KG, 3 COURSES
  3. VINCRISTINE (VINCRISTINE) [Concomitant]
  4. CYCLOPHOSPHAMIDE (CYCLOPHOSPHAMIDE) [Concomitant]
  5. CISPLATIN (CISPLATIN) [Concomitant]

REACTIONS (4)
  - Pulmonary vascular disorder [None]
  - Cardiac failure congestive [None]
  - Respiratory distress [None]
  - Pulmonary arterial hypertension [None]
